FAERS Safety Report 6656811-5 (Version None)
Quarter: 2010Q1

REPORT INFORMATION
  Report Type: 
  Country: None (occurrence: None)
  Receive Date: 20100325
  Receipt Date: 20100313
  Transmission Date: 20100710
  Serious: Yes (Hospitalization)
  Sender: FDA-Public Use
  Company Number: 2010AP000509

PATIENT
  Age: 61 Year
  Sex: Male

DRUGS (5)
  1. CIPROFLOXACIN [Suspect]
  2. VENLAFAXINE HYDROCHLORIDE [Suspect]
     Indication: DEPRESSION
     Dosage: 75 MG; BID; 100 MG; BID
  3. METHADONE HCL [Suspect]
  4. METOCLOPRAMIDE HYDROCHLORIDE [Suspect]
  5. METHADONE HCL [Concomitant]

REACTIONS (9)
  - ANXIETY [None]
  - CEREBRAL DISORDER [None]
  - CEREBRAL ISCHAEMIA [None]
  - CEREBRAL MICROANGIOPATHY [None]
  - DRUG INTERACTION [None]
  - FALL [None]
  - INTENTION TREMOR [None]
  - SEROTONIN SYNDROME [None]
  - TACHYPNOEA [None]
